FAERS Safety Report 8743553 (Version 2)
Quarter: 2012Q4

REPORT INFORMATION
  Report Type: 
  Country: CA (occurrence: CA)
  Receive Date: 20120824
  Receipt Date: 20121228
  Transmission Date: 20130627
  Serious: Yes (Death, Hospitalization, Disabling, Other)
  Sender: FDA-Public Use
  Company Number: CA-GENZYME-THYM-1003230

PATIENT
  Age: 50 Year
  Sex: Male
  Weight: 73 kg

DRUGS (3)
  1. THYMOGLOBULINE [Suspect]
     Indication: PROPHYLAXIS AGAINST GRAFT VERSUS HOST DISEASE
     Dosage: 0.5 mg/kg, once
     Route: 042
     Dates: start: 20120103, end: 20120103
  2. THYMOGLOBULINE [Suspect]
     Dosage: 2 mg/kg, once
     Route: 042
     Dates: start: 20120104, end: 20120104
  3. THYMOGLOBULINE [Suspect]
     Dosage: 2 mg/kg, once
     Route: 042
     Dates: start: 20120106, end: 20120106

REACTIONS (14)
  - Graft versus host disease in skin [Fatal]
  - Lower respiratory tract infection viral [Fatal]
  - Lower respiratory tract infection bacterial [Fatal]
  - Enterococcal bacteraemia [Unknown]
  - Hypoalbuminaemia [Unknown]
  - Ascites [Unknown]
  - Myopathy [Unknown]
  - Abdominal distension [Unknown]
  - Rash erythematous [Unknown]
  - Generalised oedema [Unknown]
  - Respiratory distress [Unknown]
  - Lung infiltration [Unknown]
  - Infection [Unknown]
  - Venoocclusive disease [Fatal]
